FAERS Safety Report 6298151-2 (Version None)
Quarter: 2009Q3

REPORT INFORMATION
  Report Type: 
  Country: None (occurrence: None)
  Receive Date: 20090805
  Receipt Date: 20090730
  Transmission Date: 20100115
  Serious: Yes (Hospitalization, Other)
  Sender: FDA-Public Use
  Company Number: JP-MERCK-0907USA01926

PATIENT
  Age: 66 Year
  Sex: Female
  Weight: 52 kg

DRUGS (10)
  1. SINGULAIR [Suspect]
     Indication: ASTHMA
     Route: 048
     Dates: end: 20090601
  2. SINGULAIR [Suspect]
     Route: 048
  3. CINAL [Concomitant]
     Route: 048
     Dates: start: 20000101
  4. ERYTHROMYCIN [Concomitant]
     Indication: BRONCHITIS CHRONIC
     Route: 048
     Dates: start: 20000101, end: 20090603
  5. THEO-DUR [Concomitant]
     Indication: BRONCHITIS CHRONIC
     Route: 048
     Dates: start: 20000101, end: 20090603
  6. MUCODYNE [Concomitant]
     Indication: BRONCHITIS CHRONIC
     Route: 048
     Dates: start: 20000101, end: 20090603
  7. DIOVAN [Concomitant]
     Indication: HYPERTENSION
     Route: 048
     Dates: start: 20080601, end: 20090716
  8. GASTER D [Concomitant]
     Indication: GASTRITIS
     Route: 048
     Dates: start: 20090601
  9. FOSAMAX [Concomitant]
     Indication: OSTEOPOROSIS
     Route: 048
     Dates: end: 20090603
  10. ADOAIR [Concomitant]
     Indication: ASTHMA

REACTIONS (1)
  - ALLERGIC GRANULOMATOUS ANGIITIS [None]
